FAERS Safety Report 8834026 (Version 1)
Quarter: 2012Q4

REPORT INFORMATION
  Report Type: 
  Country: DE (occurrence: DE)
  Receive Date: 20121010
  Receipt Date: 20121010
  Transmission Date: 20130627
  Serious: Yes (Other)
  Sender: FDA-Public Use
  Company Number: GXKR2012DE003135

PATIENT

DRUGS (3)
  1. AZITHROMYCIN [Suspect]
     Indication: BRONCHITIS
     Dosage: daily dose: 500 Mg millgram(s) every Days
     Route: 048
     Dates: start: 20120508, end: 20120510
  2. PARACETAMOL [Concomitant]
     Indication: HEADACHE
     Dosage: daily dose: 1000 Mg millgram(s) every Days
     Route: 048
     Dates: start: 20120509, end: 20120510
  3. AMBROXOL [Concomitant]
     Indication: COUGH
     Dosage: daily dose: 4 ml millilitre(s) every Days
     Route: 048
     Dates: start: 20120508, end: 20120510

REACTIONS (5)
  - Delirium [Recovered/Resolved]
  - Disorientation [Recovered/Resolved]
  - Self injurious behaviour [Recovered/Resolved]
  - Aggression [Recovered/Resolved]
  - Agitation [Recovered/Resolved]
